FAERS Safety Report 9381024 (Version 1)
Quarter: 2013Q3

REPORT INFORMATION
  Report Type: Report from Study
  Country: FR (occurrence: FR)
  Receive Date: 20130703
  Receipt Date: 20130703
  Transmission Date: 20140515
  Serious: Yes (Hospitalization)
  Sender: FDA-Public Use
  Company Number: FR-ROCHE-1241567

PATIENT
  Age: 73 Year
  Sex: Female
  Weight: 75 kg

DRUGS (9)
  1. RITUXIMAB [Suspect]
     Indication: NON-HODGKIN^S LYMPHOMA
     Dosage: SAE CYCLE NO. 3, LAST DOSE PRIOR TO SAE 22/MAR/2012, DOSE: 650 MG, CUMULATIVE DOSE SINCE FIRST ADMIN
     Route: 042
     Dates: start: 20120131
  2. VINCRISTINE [Suspect]
     Indication: NON-HODGKIN^S LYMPHOMA
     Dosage: SAE CYCLE NO. 3, LAST DOSE PRIOR TO SAE 22/MAR/2012, DOSE: 2 MG, CUMULATIVE DOSE SINCE FIRST ADMINIS
     Route: 042
     Dates: start: 20120131
  3. CYCLOPHOSPHAMIDE [Suspect]
     Indication: NON-HODGKIN^S LYMPHOMA
     Dosage: SAE CYCLE NO. 3, LAST DOSE PRIOR TO SAE 22/MAR/2012, DOSE: 1300 MG, CUMULATIVE DOSE SINCE FIRST ADMI
     Route: 042
     Dates: start: 20120131
  4. METHYLPREDNISOLONE SODIUM SUCCINATE [Suspect]
     Indication: NON-HODGKIN^S LYMPHOMA
     Dosage: SAE CYCLE NO. 3, LAST DOSE PRIOR TO SAE 22/MAR/2012, DOSE: 80 MG, CUMULATIVE DOSE SINCE FIRST ADMINI
     Route: 042
     Dates: start: 20120131
  5. PREDNISONE [Suspect]
     Indication: NON-HODGKIN^S LYMPHOMA
     Dosage: SAE CYCLE NO. 3, LAST DOSE PRIOR TO SAE 22/MAR/2012, DOSE: 60 MG, CUMULATIVE DOSE SINCE FIRST ADMINI
     Route: 048
     Dates: start: 20120131
  6. PARACETAMOL [Concomitant]
     Indication: PAIN
     Route: 042
     Dates: start: 20120223
  7. FUROSEMIDE [Concomitant]
     Indication: HYPERTENSION
     Route: 042
     Dates: start: 20120223
  8. DIFFU K [Concomitant]
     Indication: HYPOKALAEMIA
     Route: 048
     Dates: start: 20120223
  9. NOVORAPID [Concomitant]
     Indication: DIABETES MELLITUS
     Route: 042

REACTIONS (1)
  - Febrile bone marrow aplasia [Recovered/Resolved]
